FAERS Safety Report 16949969 (Version 2)
Quarter: 2019Q4

REPORT INFORMATION
  Report Type: Other
  Country: VN (occurrence: VN)
  Receive Date: 20191023
  Receipt Date: 20191101
  Transmission Date: 20200122
  Serious: Yes (Other)
  Sender: FDA-Public Use
  Company Number: PHHY2019VN197834

PATIENT

DRUGS (6)
  1. ENALAPRIL [Concomitant]
     Active Substance: ENALAPRIL
     Indication: PROPHYLAXIS
     Dosage: UNK
     Route: 065
  2. LOSARTAN. [Concomitant]
     Active Substance: LOSARTAN
     Indication: PROPHYLAXIS
     Dosage: UNK
     Route: 065
  3. MYCOPHENOLATE MOFETIL. [Suspect]
     Active Substance: MYCOPHENOLATE MOFETIL
     Indication: NEPHROTIC SYNDROME
     Dosage: UNK (0.8-1.2 G/M2 SKIN/DAY)
     Route: 065
  4. PREDNISONE. [Concomitant]
     Active Substance: PREDNISONE
     Indication: PROPHYLAXIS
     Dosage: UNK UNK, Q48H
     Route: 065
  5. TACROLIMUS. [Suspect]
     Active Substance: TACROLIMUS
     Indication: NEPHROTIC SYNDROME
     Dosage: UNK (0.1-0.2 MG/KG/DAY)
     Route: 065
  6. CICLOSPORIN [Suspect]
     Active Substance: CYCLOSPORINE
     Indication: NEPHROTIC SYNDROME
     Dosage: UNK (4- 6MG/KG/DAY)
     Route: 065

REACTIONS (2)
  - Product use in unapproved indication [Unknown]
  - Acute kidney injury [Unknown]
